FAERS Safety Report 4474796-7 (Version None)
Quarter: 2004Q4

REPORT INFORMATION
  Report Type: 
  Country: None (occurrence: None)
  Receive Date: 20041012
  Receipt Date: 20040923
  Transmission Date: 20050328
  Serious: Yes (Hospitalization)
  Sender: FDA-Public Use
  Company Number: DSA_25022_2004

PATIENT
  Age: 78 Year
  Sex: Female

DRUGS (8)
  1. ENALAPRIL MALEATE [Suspect]
     Indication: HYPERTENSION
     Dosage: 5 MG Q DAY PO
     Route: 048
     Dates: start: 20020101, end: 20040604
  2. MARCUMAR [Suspect]
     Indication: THROMBOSIS PROPHYLAXIS
     Dosage: 3 MG QD PO
     Route: 048
     Dates: start: 20030301, end: 20040604
  3. SORTIS ^GOEDECKE^ [Suspect]
     Indication: HYPERLIPIDAEMIA
     Dosage: 20 MG QD PO
     Route: 048
     Dates: start: 20030101, end: 20040604
  4. NORVASC [Concomitant]
  5. NEXIUM [Concomitant]
  6. DISALUNIL [Concomitant]
  7. BELOC-ZOK [Concomitant]
  8. UNAT [Concomitant]

REACTIONS (10)
  - ACTIVATED PARTIAL THROMBOPLASTIN TIME PROLONGED [None]
  - ASTHENIA [None]
  - CARDIOVASCULAR DISORDER [None]
  - DRUG INTERACTION [None]
  - GASTRITIS EROSIVE [None]
  - GASTRITIS HAEMORRHAGIC [None]
  - INTERNATIONAL NORMALISED RATIO INCREASED [None]
  - MELAENA [None]
  - PLATELET COUNT DECREASED [None]
  - THROMBIN TIME PROLONGED [None]
